FAERS Safety Report 16004463 (Version 1)
Quarter: 2019Q1

REPORT INFORMATION
  Report Type: Spontaneous
  Country: FR (occurrence: FR)
  Receive Date: 20190226
  Receipt Date: 20190226
  Transmission Date: 20190418
  Serious: Yes (Hospitalization)
  Sender: FDA-Public Use
  Company Number: FR-ACCORD-109342

PATIENT
  Age: 95 Year
  Sex: Female

DRUGS (7)
  1. EUPRESSYL [Suspect]
     Active Substance: URAPIDIL
     Dosage: STRENGTH:30 MG
     Route: 048
     Dates: start: 20180731
  2. ALLOPURINOL. [Suspect]
     Active Substance: ALLOPURINOL
     Route: 048
     Dates: start: 20180731
  3. PANTOPRAZOLE [Suspect]
     Active Substance: PANTOPRAZOLE
     Route: 048
     Dates: start: 20180731
  4. IRBESARTAN. [Suspect]
     Active Substance: IRBESARTAN
     Route: 048
     Dates: start: 20180731
  5. OFLOCET [Suspect]
     Active Substance: OFLOXACIN
     Dosage: STRENGTH:200MG
     Route: 048
     Dates: start: 20180731
  6. BISOPROLOL [Suspect]
     Active Substance: BISOPROLOL
     Route: 048
     Dates: start: 20180731
  7. LERCAN [Suspect]
     Active Substance: LERCANIDIPINE
     Route: 048
     Dates: start: 20180731

REACTIONS (3)
  - Hypotension [Recovered/Resolved]
  - Bradycardia [Recovered/Resolved]
  - Medication error [Unknown]

NARRATIVE: CASE EVENT DATE: 20180731
